FAERS Safety Report 7705174-2 (Version None)
Quarter: 2011Q3

REPORT INFORMATION
  Report Type: 
  Country: None (occurrence: None)
  Receive Date: 20110824
  Receipt Date: 20110817
  Transmission Date: 20111222
  Serious: Yes (Hospitalization)
  Sender: FDA-Public Use
  Company Number: FR-BRISTOL-MYERS SQUIBB COMPANY-15981400

PATIENT
  Age: 79 Year
  Sex: Male
  Weight: 80 kg

DRUGS (5)
  1. IPILIMUMAB [Suspect]
     Indication: MALIGNANT MELANOMA
     Dosage: 2ND INFU:12JUL11
     Route: 042
     Dates: start: 20110622
  2. EZETIMIBE [Concomitant]
  3. DIGOXIN [Concomitant]
  4. ASPIRIN [Concomitant]
  5. CHONDROSULF [Concomitant]

REACTIONS (3)
  - WEIGHT DECREASED [None]
  - COLITIS [None]
  - DECREASED APPETITE [None]
